FAERS Safety Report 19219312 (Version 4)
Quarter: 2025Q2

REPORT INFORMATION
  Report Type: Report from Study
  Country: IT (occurrence: IT)
  Receive Date: 20210506
  Receipt Date: 20250407
  Transmission Date: 20250716
  Serious: Yes (Hospitalization, Other)
  Sender: AUROBINDO
  Company Number: IT-ROCHE-2813901

PATIENT
  Age: 52 Year
  Sex: Female

DRUGS (12)
  1. ALPRAZOLAM [Suspect]
     Active Substance: ALPRAZOLAM
     Indication: Product used for unknown indication
     Route: 065
  2. DIAZEPAM [Suspect]
     Active Substance: DIAZEPAM
     Indication: Product used for unknown indication
     Dosage: 30 MILLIGRAM, FOUR TIMES/DAY
     Route: 065
  3. DIAZEPAM [Suspect]
     Active Substance: DIAZEPAM
     Route: 065
  4. LORAZEPAM [Suspect]
     Active Substance: LORAZEPAM
     Indication: Product used for unknown indication
     Route: 065
  5. LORMETAZEPAM [Suspect]
     Active Substance: LORMETAZEPAM
     Indication: Product used for unknown indication
     Dosage: 25 MILLIGRAM, FOUR TIMES/DAY
     Route: 065
  6. LORMETAZEPAM [Suspect]
     Active Substance: LORMETAZEPAM
     Route: 065
  7. CLONAZEPAM [Suspect]
     Active Substance: CLONAZEPAM
     Indication: Product used for unknown indication
     Dosage: 12 MILLIGRAM, FOUR TIMES/DAY
     Route: 065
  8. FLURAZEPAM [Suspect]
     Active Substance: FLURAZEPAM HYDROCHLORIDE
     Indication: Product used for unknown indication
     Dosage: 180 MILLIGRAM, FOUR TIMES/DAY
     Route: 065
  9. LORMETAZEPAM [Suspect]
     Active Substance: LORMETAZEPAM
     Indication: Product used for unknown indication
     Route: 065
  10. TRIAZOLAM [Suspect]
     Active Substance: TRIAZOLAM
     Indication: Product used for unknown indication
     Dosage: 1.5 MILLIGRAM, FOUR TIMES/DAY
     Route: 065
  11. AGOMELATINE [Concomitant]
     Active Substance: AGOMELATINE
     Indication: Antidepressant therapy
     Route: 065
  12. VENLAFAXINE [Concomitant]
     Active Substance: VENLAFAXINE HYDROCHLORIDE
     Indication: Antidepressant therapy
     Route: 065

REACTIONS (4)
  - Drug withdrawal syndrome [Unknown]
  - Overdose [Unknown]
  - Drug abuse [Unknown]
  - Drug dependence [Unknown]
